FAERS Safety Report 8977655 (Version 2)
Quarter: 2012Q4

REPORT INFORMATION
  Report Type: 
  Country: JP (occurrence: JP)
  Receive Date: 20121220
  Receipt Date: 20121227
  Transmission Date: 20130627
  Serious: Yes (Hospitalization)
  Sender: FDA-Public Use
  Company Number: JP-VIIV HEALTHCARE LIMITED-B0853691A

PATIENT
  Age: 30 Year
  Sex: Male

DRUGS (7)
  1. EPIVIR [Suspect]
     Indication: HIV INFECTION
     Dosage: 150MG Per day
     Route: 048
     Dates: start: 20110309
  2. ZIAGEN [Suspect]
     Indication: HIV INFECTION
     Dosage: 300MG Twice per day
     Route: 048
     Dates: start: 20110309
  3. ISENTRESS [Suspect]
     Indication: HIV INFECTION
     Dosage: 400MG Twice per day
     Route: 048
     Dates: start: 20110309
  4. PREDNISOLONE [Concomitant]
     Route: 065
  5. AMPHOTERICIN B [Concomitant]
     Route: 065
  6. FLUCYTOSINE [Concomitant]
     Route: 065
  7. GANCICLOVIR [Concomitant]
     Route: 065

REACTIONS (4)
  - Immune reconstitution inflammatory syndrome [Unknown]
  - Loss of consciousness [Recovered/Resolved]
  - Headache [Recovered/Resolved]
  - Intracranial pressure increased [Recovered/Resolved]
